FAERS Safety Report 23321545 (Version 1)
Quarter: 2023Q4

REPORT INFORMATION
  Report Type: Report from Study
  Country: US (occurrence: None)
  Receive Date: 20231220
  Receipt Date: 20231220
  Transmission Date: 20240110
  Serious: Yes (Other)
  Sender: FDA-Public Use
  Company Number: 2023A286339

PATIENT
  Sex: Male

DRUGS (1)
  1. LYNPARZA [Suspect]
     Active Substance: OLAPARIB
     Indication: Prostate cancer
     Route: 048
     Dates: start: 20231012

REACTIONS (5)
  - Prostatic specific antigen increased [Unknown]
  - Thrombocytopenia [Unknown]
  - Ear infection [Unknown]
  - Fatigue [Not Recovered/Not Resolved]
  - Neutropenia [Unknown]
